FAERS Safety Report 14173423 (Version 1)
Quarter: 2017Q4

REPORT INFORMATION
  Report Type: Spontaneous
  Country: US (occurrence: US)
  Receive Date: 20171109
  Receipt Date: 20171109
  Transmission Date: 20180321
  Serious: Yes (Disabling)
  Sender: FDA-Public Use
  Company Number: None

PATIENT
  Sex: Male
  Weight: 62.55 kg

DRUGS (11)
  1. NAC [Concomitant]
  2. LEVAQUIN [Suspect]
     Active Substance: LEVOFLOXACIN
     Indication: SINUSITIS
     Dates: start: 20170908, end: 20170930
  3. FLOVENT [Concomitant]
     Active Substance: FLUTICASONE PROPIONATE
  4. BUDESONIDE. [Concomitant]
     Active Substance: BUDESONIDE
  5. CALCIUM [Concomitant]
     Active Substance: CALCIUM
  6. VITAMIN D [Concomitant]
     Active Substance: CHOLECALCIFEROL
  7. HYPERTONIC SALINE [Concomitant]
     Active Substance: SODIUM CHLORIDE
  8. HYDROCORTISONE. [Concomitant]
     Active Substance: HYDROCORTISONE
  9. PROBIOTICS [Concomitant]
     Active Substance: PROBIOTICS NOS
  10. PREDISONE [Concomitant]
     Active Substance: PREDNISONE
  11. ALBUTEROL. [Concomitant]
     Active Substance: ALBUTEROL

REACTIONS (2)
  - Arthralgia [None]
  - Tendon injury [None]

NARRATIVE: CASE EVENT DATE: 20170911
